FAERS Safety Report 16693883 (Version 2)
Quarter: 2020Q1

REPORT INFORMATION
  Report Type: Report from Study
  Country: US (occurrence: US)
  Receive Date: 20190812
  Receipt Date: 20200203
  Transmission Date: 20200409
  Serious: Yes (Hospitalization)
  Sender: FDA-Public Use
  Company Number: US-ACTELION-A-US2019-194133

PATIENT
  Age: 37 Year
  Sex: Female
  Weight: 80.73 kg

DRUGS (9)
  1. TYVASO [Concomitant]
     Active Substance: TREPROSTINIL
  2. AMLODIPINE [Concomitant]
     Active Substance: AMLODIPINE BESYLATE
  3. SPIRONOLACTONE. [Concomitant]
     Active Substance: SPIRONOLACTONE
  4. OPSUMIT [Suspect]
     Active Substance: MACITENTAN
     Indication: PULMONARY HYPERTENSION
     Dosage: 10 MG, QD
     Route: 048
     Dates: start: 20160503
  5. FUROSEMIDE. [Concomitant]
     Active Substance: FUROSEMIDE
  6. NECON [Concomitant]
     Active Substance: ETHINYL ESTRADIOL\NORETHINDRONE
  7. COUMADIN [Concomitant]
     Active Substance: WARFARIN SODIUM
  8. ADCIRCA [Concomitant]
     Active Substance: TADALAFIL
  9. REMODULIN [Concomitant]
     Active Substance: TREPROSTINIL

REACTIONS (2)
  - Hospitalisation [Unknown]
  - Metabolic function test abnormal [Recovered/Resolved]

NARRATIVE: CASE EVENT DATE: 20190725
